FAERS Safety Report 9458862 (Version 5)
Quarter: 2015Q1

REPORT INFORMATION
  Report Type: Spontaneous
  Country: US (occurrence: US)
  Receive Date: 20130814
  Receipt Date: 20150303
  Transmission Date: 20150721
  Serious: Yes (Other)
  Sender: FDA-Public Use
  Company Number: US-GLAXOSMITHKLINE-A1036606A

PATIENT
  Age: 66 Year
  Sex: Female
  Weight: 70.5 kg

DRUGS (5)
  1. MONTELUKAST [Concomitant]
     Active Substance: MONTELUKAST SODIUM
  2. VENTOLIN [Suspect]
     Active Substance: ALBUTEROL SULFATE
     Dosage: 1 PUFF(S), U
  3. ALBUTEROL. [Suspect]
     Active Substance: ALBUTEROL
     Indication: PRODUCT USED FOR UNKNOWN INDICATION
     Dosage: UNK, U
  4. VENTOLIN [Suspect]
     Active Substance: ALBUTEROL SULFATE
     Indication: MULTIPLE ALLERGIES
     Route: 055
     Dates: start: 2012
  5. VENTOLIN [Suspect]
     Active Substance: ALBUTEROL SULFATE
     Dosage: UNK
     Dates: start: 2012

REACTIONS (11)
  - Respiratory tract irritation [Recovered/Resolved]
  - Burning sensation [Recovered/Resolved]
  - Device use error [Unknown]
  - Product quality issue [Unknown]
  - Pulmonary congestion [Recovered/Resolved]
  - Lung disorder [Recovered/Resolved]
  - Drug hypersensitivity [Unknown]
  - Wheezing [Recovered/Resolved]
  - Inhalation therapy [Recovered/Resolved]
  - Incorrect product storage [Unknown]
  - Pneumonitis [Recovered/Resolved]

NARRATIVE: CASE EVENT DATE: 20130805
